FAERS Safety Report 6268827-1 (Version None)
Quarter: 2009Q3

REPORT INFORMATION
  Report Type: 
  Country: None (occurrence: None)
  Receive Date: 20090710
  Receipt Date: 20090710
  Transmission Date: 20100115
  Serious: Yes (Other)
  Sender: FDA-Public Use
  Company Number: None

PATIENT
  Age: 78 Year
  Sex: Female
  Weight: 63.05 kg

DRUGS (4)
  1. REGLAN [Suspect]
     Indication: EARLY SATIETY
     Dosage: 1 TAB BEFORE EACH MEAL PO
     Route: 048
     Dates: start: 20090628, end: 20090705
  2. REGLAN [Suspect]
     Indication: GASTROOESOPHAGEAL REFLUX DISEASE
     Dosage: 1 TAB BEFORE EACH MEAL PO
     Route: 048
     Dates: start: 20090628, end: 20090705
  3. REGLAN [Suspect]
     Indication: HIATUS HERNIA
     Dosage: 1 TAB BEFORE EACH MEAL PO
     Route: 048
     Dates: start: 20090628, end: 20090705
  4. PROTONIX [Concomitant]

REACTIONS (6)
  - CONFUSIONAL STATE [None]
  - DEPRESSION [None]
  - FEELING ABNORMAL [None]
  - INSOMNIA [None]
  - SUICIDAL BEHAVIOUR [None]
  - THINKING ABNORMAL [None]
